FAERS Safety Report 5964924-6 (Version None)
Quarter: 2008Q4

REPORT INFORMATION
  Report Type: 
  Country: None (occurrence: None)
  Receive Date: 20081125
  Receipt Date: 20081117
  Transmission Date: 20090506
  Serious: Yes (Hospitalization)
  Sender: FDA-Public Use
  Company Number: US-BIOGENIDEC-2007BI022467

PATIENT
  Age: 38 Year
  Sex: Female
  Weight: 129 kg

DRUGS (2)
  1. AVONEX [Suspect]
     Indication: MULTIPLE SCLEROSIS
     Route: 030
     Dates: start: 20040101, end: 20050101
  2. AVONEX [Suspect]
     Route: 030
     Dates: start: 20050101

REACTIONS (5)
  - ABDOMINAL HERNIA [None]
  - FURUNCLE [None]
  - HEMIPARESIS [None]
  - PAIN [None]
  - STRESS [None]
